FAERS Safety Report 16879356 (Version 1)
Quarter: 2019Q4

REPORT INFORMATION
  Report Type: Report from Study
  Country: None (occurrence: KW)
  Receive Date: 20191003
  Receipt Date: 20191003
  Transmission Date: 20200122
  Serious: Yes (Hospitalization)
  Sender: FDA-Public Use
  Company Number: KW-ABBVIE-19K-091-2923243-00

PATIENT
  Age: 28 Year
  Sex: Female
  Weight: 62 kg

DRUGS (8)
  1. HUMIRA [Suspect]
     Active Substance: ADALIMUMAB
     Indication: COLITIS ULCERATIVE
     Route: 058
     Dates: start: 20170603, end: 20190831
  2. ASACOL [Concomitant]
     Active Substance: MESALAMINE
     Indication: COLITIS ULCERATIVE
     Route: 054
     Dates: end: 20190901
  3. ASACOL [Concomitant]
     Active Substance: MESALAMINE
     Route: 054
     Dates: start: 20190901
  4. GASEC 20 [Concomitant]
     Indication: GASTRIC DISORDER
     Route: 048
  5. FERROUS SULFATE. [Concomitant]
     Active Substance: FERROUS SULFATE
     Indication: BLOOD IRON
     Route: 048
  6. HUMIRA [Suspect]
     Active Substance: ADALIMUMAB
     Route: 058
     Dates: start: 20190831, end: 20190914
  7. HUMIRA [Suspect]
     Active Substance: ADALIMUMAB
     Route: 058
     Dates: start: 20190914
  8. PENTASA [Concomitant]
     Active Substance: MESALAMINE
     Indication: COLITIS ULCERATIVE
     Route: 048

REACTIONS (4)
  - Blood potassium decreased [Unknown]
  - Diarrhoea haemorrhagic [Recovered/Resolved]
  - Drug ineffective [Recovered/Resolved]
  - Dizziness [Recovering/Resolving]

NARRATIVE: CASE EVENT DATE: 20190901
